FAERS Safety Report 8485440-6 (Version None)
Quarter: 2012Q2

REPORT INFORMATION
  Report Type: 
  Country: None (occurrence: None)
  Receive Date: 20120627
  Receipt Date: 20120627
  Transmission Date: 20120825
  Serious: Yes (Other)
  Sender: FDA-Public Use
  Company Number: None

PATIENT
  Age: 19 Year
  Sex: Female
  Weight: 75 kg

DRUGS (7)
  1. MESALAMINE 1200 MILLIGRAMS THREE TIMES DAILY [Concomitant]
  2. AZATHIOPRINE 100 MILLIGRAMS DAILY [Concomitant]
  3. FERROUS SULFATE 325 MILLIGRAMS/65 DELAYED RELEASE THREE TIMES DAILY [Concomitant]
  4. HYOSCYAMINE 0.125 MILLIGRAM SUBLINGUAL TABLET 1 TABLET UNDER THE TONGU [Concomitant]
  5. ERGOCALCIFEROL 50,000 UNITS TWICE WEEKLY [Concomitant]
  6. REMICADE EVERY TWO MONTHS, LAST DOSE MARCH 23, 2012 [Concomitant]
  7. FERAHEME [Suspect]
     Indication: ANAEMIA
     Dosage: MAX RATE OF 30MG/SEC ONCE IV
     Route: 042
     Dates: start: 20120415, end: 20120416

REACTIONS (4)
  - FACE OEDEMA [None]
  - CHEST DISCOMFORT [None]
  - FLUSHING [None]
  - PARAESTHESIA [None]
